FAERS Safety Report 12674811 (Version 1)
Quarter: 2016Q3

REPORT INFORMATION
  Report Type: Spontaneous
  Country: US (occurrence: US)
  Receive Date: 20160822
  Receipt Date: 20160822
  Transmission Date: 20161109
  Serious: No
  Sender: FDA-Public Use
  Company Number: US-RECKITT BENCKISER HEALTHCARE INT LIMITED-RB-85257-2016

PATIENT
  Sex: Male

DRUGS (1)
  1. MUCINEX D [Suspect]
     Active Substance: GUAIFENESIN\PSEUDOEPHEDRINE HYDROCHLORIDE
     Indication: PRODUCT USED FOR UNKNOWN INDICATION
     Dosage: TOOK PRODUCT AS DIRECTED FROM DOCTOR
     Route: 065
     Dates: start: 20160410, end: 20160424

REACTIONS (2)
  - Drug ineffective [Not Recovered/Not Resolved]
  - Incorrect drug administration duration [Recovered/Resolved]
